FAERS Safety Report 20414482 (Version 1)
Quarter: 2022Q1

REPORT INFORMATION
  Report Type: Spontaneous
  Country: CY (occurrence: CY)
  Receive Date: 20220202
  Receipt Date: 20220202
  Transmission Date: 20220423
  Serious: Yes (Other)
  Sender: FDA-Public Use
  Company Number: CY-LUPIN PHARMACEUTICALS INC.-2022-01133

PATIENT
  Age: 78 Year
  Sex: Male

DRUGS (1)
  1. CEFIXIME [Suspect]
     Active Substance: CEFIXIME
     Indication: Urinary tract infection
     Dosage: 400 MILLIGRAM (TABLET)
     Route: 065

REACTIONS (1)
  - Therapy non-responder [Unknown]
